FAERS Safety Report 4767469-4 (Version None)
Quarter: 2005Q3

REPORT INFORMATION
  Report Type: 
  Country: None (occurrence: None)
  Receive Date: 20050912
  Receipt Date: 20050831
  Transmission Date: 20060218
  Serious: Yes (Death)
  Sender: FDA-Public Use
  Company Number: 2005S1006655

PATIENT
  Age: 69 Year
  Sex: Female

DRUGS (12)
  1. CLOZAPINE [Suspect]
     Indication: SCHIZOAFFECTIVE DISORDER
     Dosage: 200 MG; QAM; PO; 300 MG; HS; PO
     Route: 048
     Dates: start: 20040701
  2. CLOZAPINE [Suspect]
     Indication: SCHIZOAFFECTIVE DISORDER
     Dosage: 200 MG; QAM; PO; 300 MG; HS; PO
     Route: 048
     Dates: start: 20040701
  3. OLANZAPINE [Concomitant]
  4. TOLTERODINE TARTRATE [Concomitant]
  5. IBUPROFEN [Concomitant]
  6. MAGNESIUM HYDROXIDE TAB [Concomitant]
  7. DOCUSATE SODIUM [Concomitant]
  8. LITHIUM CARBONATE [Concomitant]
  9. ASANTROZOLE [Concomitant]
  10. ASPIRIN [Concomitant]
  11. NITROFURANTOIN [Concomitant]
  12. ERGOCALCIFEROL/ASCORBIC ACID/FOLIC ACID/THIAMIINE HYDROCHLORIDE/RETINO [Concomitant]

REACTIONS (2)
  - BREAST CANCER [None]
  - METASTATIC NEOPLASM [None]
